FAERS Safety Report 8123711-3 (Version None)
Quarter: 2012Q1

REPORT INFORMATION
  Report Type: 
  Country: None (occurrence: None)
  Receive Date: 20120208
  Receipt Date: 20120131
  Transmission Date: 20120608
  Serious: Yes (Hospitalization, Other)
  Sender: FDA-Public Use
  Company Number: JP-ABBOTT-12P-087-0900200-00

PATIENT
  Sex: Male
  Weight: 70 kg

DRUGS (10)
  1. HUMIRA [Suspect]
     Indication: CROHN'S DISEASE
     Route: 058
     Dates: start: 20101211, end: 20101211
  2. HUMIRA [Suspect]
     Dates: start: 20101225, end: 20101225
  3. ETHYL LOFLAZEPATE [Concomitant]
     Indication: PROPHYLAXIS
  4. HUMIRA [Suspect]
     Dates: start: 20110108, end: 20110108
  5. AZATHIOPRINE [Concomitant]
     Indication: CROHN'S DISEASE
     Route: 048
  6. BROMAZEPAM [Concomitant]
     Indication: PROPHYLAXIS
  7. MESALAMINE [Concomitant]
     Indication: CROHN'S DISEASE
     Route: 048
  8. ANTIBIOTICS-RESISTANT LACTIC ACID BACTERIAE [Concomitant]
     Indication: CROHN'S DISEASE
     Route: 048
  9. BROMAZEPAM [Concomitant]
     Indication: ANXIETY DISORDER
     Route: 048
  10. ETHYL LOFLAZEPATE [Concomitant]
     Indication: ANXIETY DISORDER
     Dosage: 4 MG/DAY
     Route: 048

REACTIONS (3)
  - FOLLICULITIS [None]
  - ASTHMA [None]
  - ANTIBIOTIC RESISTANT STAPHYLOCOCCUS TEST POSITIVE [None]
